FAERS Safety Report 6389774-0 (Version None)
Quarter: 2009Q4

REPORT INFORMATION
  Report Type: 
  Country: None (occurrence: None)
  Receive Date: 20091006
  Receipt Date: 20090924
  Transmission Date: 20100525
  Serious: Yes (Hospitalization)
  Sender: FDA-Public Use
  Company Number: BE-PFIZER INC-2007047339

PATIENT
  Age: 69 Year

DRUGS (5)
  1. DOCETAXEL [Suspect]
     Indication: BREAST CANCER
     Dosage: 155 MG/M2, EVERY 3 WEEKS
     Route: 042
     Dates: start: 20070531, end: 20070531
  2. *TRASTUZUMAB [Suspect]
     Indication: BREAST CANCER
     Dosage: 8 MG/M2, EVERY 3 WEEKS
     Route: 042
     Dates: start: 20070531, end: 20070531
  3. SUNITINIB MALATE [Suspect]
     Indication: BREAST CANCER
     Dosage: 37.5 MG, 1X/DAY
     Route: 048
     Dates: start: 20070601, end: 20070602
  4. INDERAL [Concomitant]
     Route: 048
  5. MODURETIC 5-50 [Concomitant]
     Route: 048

REACTIONS (2)
  - GENERAL PHYSICAL HEALTH DETERIORATION [None]
  - NEUTROPENIA [None]
